FAERS Safety Report 6357780-8 (Version None)
Quarter: 2009Q3

REPORT INFORMATION
  Report Type: 
  Country: None (occurrence: None)
  Receive Date: 20090911
  Receipt Date: 20090813
  Transmission Date: 20100115
  Serious: Yes (Hospitalization, Other)
  Sender: FDA-Public Use
  Company Number: 2009AL005688

PATIENT
  Sex: Female

DRUGS (4)
  1. EPIRUBICIN HCL [Suspect]
     Indication: ADENOCARCINOMA
     Dosage: IV
     Route: 042
     Dates: start: 20090702
  2. ELOXATIN [Concomitant]
  3. GLUCOSE [Concomitant]
  4. CAPECITABINE [Concomitant]

REACTIONS (9)
  - CATHETER RELATED INFECTION [None]
  - FATIGUE [None]
  - HYPERSENSITIVITY [None]
  - OLIGURIA [None]
  - PYREXIA [None]
  - SEPSIS [None]
  - SHOCK [None]
  - TYPE IV HYPERSENSITIVITY REACTION [None]
  - VOMITING [None]
